FAERS Safety Report 21002040 (Version 1)
Quarter: 2022Q2

REPORT INFORMATION
  Report Type: Spontaneous
  Country: US (occurrence: US)
  Receive Date: 20220624
  Receipt Date: 20220624
  Transmission Date: 20220721
  Serious: No
  Sender: FDA-Public Use
  Company Number: US-GLAXOSMITHKLINE-USCH2022021872

PATIENT
  Sex: Female

DRUGS (1)
  1. ALLI [Suspect]
     Active Substance: ORLISTAT
     Indication: Weight loss diet
     Dosage: UNK
     Dates: start: 20220601, end: 20220618

REACTIONS (2)
  - Diarrhoea [Recovering/Resolving]
  - Faeces discoloured [Recovering/Resolving]

NARRATIVE: CASE EVENT DATE: 20220603
